FAERS Safety Report 4351514-4 (Version None)
Quarter: 2004Q2

REPORT INFORMATION
  Report Type: 
  Country: None (occurrence: None)
  Receive Date: 20040428
  Receipt Date: 20040414
  Transmission Date: 20050107
  Serious: Yes (Life-Threatening, Other)
  Sender: FDA-Public Use
  Company Number: USA040363244

PATIENT
  Sex: Female
  Weight: 85 kg

DRUGS (6)
  1. ZYPREXA [Suspect]
     Indication: SLEEP DISORDER
     Dosage: 7.5 MG/DAY
     Dates: start: 20020101
  2. LEXAPRO [Concomitant]
  3. DIGOXIN [Concomitant]
  4. PROTONIX [Concomitant]
  5. LORAZEPAM [Concomitant]
  6. VALIUM [Concomitant]

REACTIONS (4)
  - ASTHENIA [None]
  - CEREBRAL THROMBOSIS [None]
  - INCREASED APPETITE [None]
  - WEIGHT INCREASED [None]
